FAERS Safety Report 6044697-1 (Version None)
Quarter: 2009Q1

REPORT INFORMATION
  Report Type: 
  Country: None (occurrence: None)
  Receive Date: 20090120
  Receipt Date: 20090108
  Transmission Date: 20090719
  Serious: Yes (Hospitalization, Disabling, Other)
  Sender: FDA-Public Use
  Company Number: CA-ROXANE LABORATORIES, INC.-2009-RO-00034RO

PATIENT
  Age: 16 Month
  Sex: Male

DRUGS (3)
  1. NAPROXEN [Suspect]
     Indication: JUVENILE ARTHRITIS
  2. FERROUS FUMARATE [Suspect]
     Indication: IRON DEFICIENCY ANAEMIA
  3. TRIAMCINOLONE HEXACETONIDE [Concomitant]
     Indication: ARTHRALGIA
     Route: 014

REACTIONS (9)
  - ARTHRALGIA [None]
  - ASCITES [None]
  - FAECES DISCOLOURED [None]
  - GENERALISED OEDEMA [None]
  - HYPOALBUMINAEMIA [None]
  - IRON DEFICIENCY ANAEMIA [None]
  - OCCULT BLOOD [None]
  - PALLOR [None]
  - PROTEIN-LOSING GASTROENTEROPATHY [None]
